FAERS Safety Report 10367107 (Version 1)
Quarter: 2014Q3

REPORT INFORMATION
  Report Type: Spontaneous
  Country: US (occurrence: US)
  Receive Date: 20140807
  Receipt Date: 20140807
  Transmission Date: 20150326
  Serious: No
  Sender: FDA-Public Use
  Company Number: US-BIOGENIDEC-2014BI068996

PATIENT
  Sex: Female

DRUGS (4)
  1. IBUPROFEN. [Concomitant]
     Active Substance: IBUPROFEN
  2. AVONEX [Concomitant]
     Active Substance: INTERFERON BETA-1A
     Indication: MULTIPLE SCLEROSIS
     Route: 030
     Dates: start: 20130819
  3. PRILOSEC [Concomitant]
     Active Substance: OMEPRAZOLE MAGNESIUM
  4. TECFIDERA [Suspect]
     Active Substance: DIMETHYL FUMARATE
     Indication: MULTIPLE SCLEROSIS
     Route: 048
     Dates: start: 20140624

REACTIONS (6)
  - Pruritus [Recovered/Resolved with Sequelae]
  - Irritability [Recovered/Resolved with Sequelae]
  - Abdominal pain upper [Recovered/Resolved with Sequelae]
  - Pain [Recovered/Resolved with Sequelae]
  - Flushing [Recovered/Resolved with Sequelae]
  - Nausea [Recovered/Resolved with Sequelae]
